FAERS Safety Report 5037351-6 (Version None)
Quarter: 2006Q2

REPORT INFORMATION
  Report Type: 
  Country: None (occurrence: None)
  Receive Date: 20060622
  Receipt Date: 20060612
  Transmission Date: 20061013
  Serious: Yes (Death)
  Sender: FDA-Public Use
  Company Number: 2006EU001774

PATIENT
  Age: 32 Year
  Sex: Male

DRUGS (7)
  1. FK506             (TACROLIMUS) [Suspect]
     Indication: HEART TRANSPLANT
     Dosage: 4.5 MG, ORAL
     Route: 048
     Dates: start: 20060314
  2. MYCOPHENOLATE MOFETIL [Suspect]
     Indication: HEART TRANSPLANT
     Dosage: 2 G, ORAL
     Route: 048
     Dates: start: 20051209
  3. SIROLIMUS (SIROLIMUS) [Suspect]
     Indication: HEART TRANSPLANT
  4. CORTICOSTEROIDS () [Suspect]
     Indication: HEART TRANSPLANT
  5. PREDNISONE     (PREDNISONE ACETATE) [Concomitant]
  6. OMEPRAZOL (OMEPRAZOLE MAGNESIUM) [Concomitant]
  7. FLUVASTATIN SODIUM [Concomitant]

REACTIONS (7)
  - ALANINE AMINOTRANSFERASE INCREASED [None]
  - ASPARTATE AMINOTRANSFERASE INCREASED [None]
  - BLOOD CREATININE INCREASED [None]
  - BLOOD UREA INCREASED [None]
  - CARDIAC ARREST [None]
  - COMA [None]
  - SEPSIS [None]
